FAERS Safety Report 12088332 (Version 1)
Quarter: 2016Q1

REPORT INFORMATION
  Report Type: Spontaneous
  Country: US (occurrence: US)
  Receive Date: 20160218
  Receipt Date: 20160218
  Transmission Date: 20160526
  Serious: Yes (Other)
  Sender: FDA-Public Use
  Company Number: US-BEH-2016058738

PATIENT
  Sex: Female
  Weight: 84 kg

DRUGS (16)
  1. HIZENTRA [Suspect]
     Active Substance: HUMAN IMMUNOGLOBULIN G
     Indication: HYPOGAMMAGLOBULINAEMIA
     Dosage: 4 GM 20 ML VIAL
     Route: 058
  2. SAVELLA [Concomitant]
     Active Substance: MILNACIPRAN HYDROCHLORIDE
  3. MACROBID [Concomitant]
     Active Substance: NITROFURANTOIN\NITROFURANTOIN MONOHYDRATE
  4. ACETAMINOPHEN. [Concomitant]
     Active Substance: ACETAMINOPHEN
  5. PROMETHAZINE [Concomitant]
     Active Substance: PROMETHAZINE\PROMETHAZINE HYDROCHLORIDE
  6. IMITREX [Concomitant]
     Active Substance: SUMATRIPTAN SUCCINATE
  7. DIPHENHYDRAMINE. [Concomitant]
     Active Substance: DIPHENHYDRAMINE
  8. EPIPEN [Concomitant]
     Active Substance: EPINEPHRINE
  9. ADDERALL [Suspect]
     Active Substance: AMPHETAMINE ASPARTATE\AMPHETAMINE SULFATE\DEXTROAMPHETAMINE SACCHARATE\DEXTROAMPHETAMINE SULFATE
  10. ORAMORPH SR SUSTAINED RELEASE [Concomitant]
     Active Substance: MORPHINE SULFATE
  11. BACLOFEN. [Suspect]
     Active Substance: BACLOFEN
  12. CUTIVATE [Concomitant]
     Active Substance: FLUTICASONE PROPIONATE
  13. ATIVAN [Concomitant]
     Active Substance: LORAZEPAM
  14. LMX [Concomitant]
     Active Substance: LIDOCAINE
  15. PROVIGIL [Suspect]
     Active Substance: MODAFINIL
  16. LYRICA [Concomitant]
     Active Substance: PREGABALIN

REACTIONS (8)
  - Loss of consciousness [Unknown]
  - Seizure [Unknown]
  - Cognitive disorder [Unknown]
  - Balance disorder [Unknown]
  - Diplopia [Unknown]
  - Blood potassium decreased [Unknown]
  - Vision blurred [Unknown]
  - Aphasia [Unknown]
